FAERS Safety Report 7294487-7 (Version None)
Quarter: 2011Q1

REPORT INFORMATION
  Report Type: 
  Country: None (occurrence: None)
  Receive Date: 20110216
  Receipt Date: 20110208
  Transmission Date: 20110831
  Serious: Yes (Hospitalization, Other)
  Sender: FDA-Public Use
  Company Number: US-BIOGENIDEC-2010BI044055

PATIENT
  Age: 62 Year
  Sex: Female

DRUGS (2)
  1. AVONEX [Suspect]
     Indication: MULTIPLE SCLEROSIS
     Route: 030
     Dates: start: 19980601, end: 20000301
  2. AVONEX [Suspect]
     Route: 030
     Dates: start: 20000925

REACTIONS (3)
  - LYMPHOMA [None]
  - WHITE BLOOD CELL COUNT DECREASED [None]
  - COLON CANCER [None]
